FAERS Safety Report 5817776-9 (Version None)
Quarter: 2008Q3

REPORT INFORMATION
  Report Type: 
  Country: None (occurrence: None)
  Receive Date: 20080722
  Receipt Date: 20080711
  Transmission Date: 20090109
  Serious: Yes (Hospitalization)
  Sender: FDA-Public Use
  Company Number: JP-AMGEN-US293085

PATIENT
  Sex: Female
  Weight: 42 kg

DRUGS (8)
  1. ENBREL [Suspect]
     Indication: RHEUMATOID ARTHRITIS
     Route: 058
     Dates: start: 20071113, end: 20080415
  2. AMARYL [Concomitant]
     Dosage: UNKNOWN
     Route: 048
  3. LIVALO [Concomitant]
     Dosage: UNKNOWN
     Route: 048
  4. RHEUMATREX [Concomitant]
     Indication: RHEUMATOID ARTHRITIS
     Route: 048
     Dates: start: 20020531
  5. PREDONINE [Concomitant]
     Indication: RHEUMATOID ARTHRITIS
     Route: 048
     Dates: start: 20020531
  6. LOXONIN [Concomitant]
     Dosage: UNKNOWN
     Route: 048
  7. FOLIAMIN [Concomitant]
     Dosage: UNKNOWN
     Route: 048
  8. SEPAMIT [Concomitant]
     Route: 065

REACTIONS (2)
  - HISTIOCYTOSIS HAEMATOPHAGIC [None]
  - URINARY TRACT INFECTION [None]
